FAERS Safety Report 14762308 (Version 2)
Quarter: 2021Q2

REPORT INFORMATION
  Report Type: Report from Study
  Country: CA (occurrence: CA)
  Receive Date: 20180416
  Receipt Date: 20210610
  Transmission Date: 20210716
  Serious: Yes (Other)
  Sender: FDA-Public Use
  Company Number: CA-AEGERION PHARMACEUTICAL, INC-AEGR003504

PATIENT

DRUGS (1)
  1. JUXTAPID [Suspect]
     Active Substance: LOMITAPIDE MESYLATE
     Indication: TYPE IIA HYPERLIPIDAEMIA
     Dosage: 5 MG, QD
     Route: 048
     Dates: start: 20141128, end: 2018

REACTIONS (1)
  - Hepatic enzyme increased [Not Recovered/Not Resolved]
